FAERS Safety Report 18985337 (Version 1)
Quarter: 2021Q1

REPORT INFORMATION
  Report Type: Spontaneous
  Country: US (occurrence: US)
  Receive Date: 20210305
  Receipt Date: 20210305
  Transmission Date: 20210420
  Serious: Yes (Other)
  Sender: FDA-Public Use
  Company Number: None

PATIENT
  Age: 54 Year
  Sex: Male
  Weight: 58.5 kg

DRUGS (7)
  1. TRIFERIC [Suspect]
     Active Substance: FERRIC PYROPHOSPHATE CITRATE
     Indication: BLOOD IRON ABNORMAL
     Dosage: ?          QUANTITY:1 DF DOSAGE FORM;OTHER FREQUENCY:EVERY DIALYSIS TX;?
     Dates: start: 20210210, end: 20210212
  2. LABETALOL [Concomitant]
     Active Substance: LABETALOL\LABETALOL HYDROCHLORIDE
  3. LISINOPRIL. [Concomitant]
     Active Substance: LISINOPRIL
  4. HYDRALAZINE [Concomitant]
     Active Substance: HYDRALAZINE HYDROCHLORIDE
  5. FAMOTIDINE. [Concomitant]
     Active Substance: FAMOTIDINE
  6. ENTRESTO [Concomitant]
     Active Substance: SACUBITRIL\VALSARTAN
  7. BRILINTA [Concomitant]
     Active Substance: TICAGRELOR

REACTIONS (1)
  - Thrombosis in device [None]

NARRATIVE: CASE EVENT DATE: 20210210
